FAERS Safety Report 5525482-3 (Version None)
Quarter: 2007Q4

REPORT INFORMATION
  Report Type: 
  Country: None (occurrence: None)
  Receive Date: 20071120
  Receipt Date: 20071112
  Transmission Date: 20080405
  Serious: Yes (Other)
  Sender: FDA-Public Use
  Company Number: 2007335079

PATIENT
  Age: 25 Year
  Sex: Female
  Weight: 52.1637 kg

DRUGS (1)
  1. SUDAFED S.A. [Suspect]
     Dosage: 2 TABLETS IN 12 HOURS, ORAL
     Route: 048
     Dates: start: 20071111, end: 20071112

REACTIONS (1)
  - HYPOAESTHESIA FACIAL [None]
